FAERS Safety Report 6416751-3 (Version None)
Quarter: 2009Q4

REPORT INFORMATION
  Report Type: 
  Country: None (occurrence: None)
  Receive Date: 20091022
  Receipt Date: 20091012
  Transmission Date: 20100525
  Serious: Yes (Hospitalization)
  Sender: FDA-Public Use
  Company Number: FABR-1000768

PATIENT
  Age: 14 Year
  Sex: Male
  Weight: 46.3 kg

DRUGS (13)
  1. FABRAZYME [Suspect]
     Indication: FABRY'S DISEASE
     Dosage: 45 MG, Q2W, INTRAVENOUS; 45 MG, Q2W, INTRAVENOUS
     Route: 042
     Dates: start: 20050923
  2. FABRAZYME [Suspect]
  3. LYRICA [Concomitant]
  4. TYLENOL [Concomitant]
  5. MOTRIN [Concomitant]
  6. ALLEGRA [Concomitant]
  7. IBUPROFEN [Concomitant]
  8. BENADRYL [Concomitant]
  9. SOLU-CORTEF [Concomitant]
  10. FABRAZYME [Suspect]
  11. FABRAZYME [Suspect]
  12. FABRAZYME [Suspect]
  13. FABRAZYME [Suspect]

REACTIONS (7)
  - HEART RATE INCREASED [None]
  - INFUSION RELATED REACTION [None]
  - PARAESTHESIA [None]
  - STAPHYLOCOCCAL BACTERAEMIA [None]
  - TREATMENT NONCOMPLIANCE [None]
  - VOMITING [None]
  - WEIGHT INCREASED [None]
